FAERS Safety Report 9531190 (Version 2)
Quarter: 2014Q3

REPORT INFORMATION
  Report Type: Spontaneous
  Country: US (occurrence: US)
  Receive Date: 20130918
  Receipt Date: 20140901
  Transmission Date: 20150326
  Serious: Yes (Hospitalization, Other)
  Sender: FDA-Public Use
  Company Number: US-009507513-1309USA006853

PATIENT
  Sex: Female

DRUGS (2)
  1. SYNTHROID [Concomitant]
     Active Substance: LEVOTHYROXINE SODIUM
     Indication: HYPOTHYROIDISM
  2. NUVARING [Suspect]
     Active Substance: ETHINYL ESTRADIOL\ETONOGESTREL
     Indication: CONTRACEPTION
     Dosage: UNK
     Route: 048
     Dates: start: 20090105, end: 20120110

REACTIONS (12)
  - Pneumonia aspiration [Recovering/Resolving]
  - Thrombocytosis [Recovering/Resolving]
  - Urinary tract infection [Recovering/Resolving]
  - Gastritis [Unknown]
  - Cardiac arrest [Recovering/Resolving]
  - Generalised tonic-clonic seizure [Recovered/Resolved]
  - Pulmonary embolism [Recovering/Resolving]
  - Phlebitis [Unknown]
  - Deep vein thrombosis [Unknown]
  - Clostridium difficile colitis [Recovering/Resolving]
  - Vena cava filter insertion [Recovering/Resolving]
  - Hypoxic-ischaemic encephalopathy [Recovering/Resolving]

NARRATIVE: CASE EVENT DATE: 20091017
